FAERS Safety Report 8015782 (Version 3)
Quarter: 2012Q4

REPORT INFORMATION
  Report Type: 
  Country: US (occurrence: US)
  Receive Date: 20110629
  Receipt Date: 20121125
  Transmission Date: 20130627
  Serious: Yes (Other)
  Sender: FDA-Public Use
  Company Number: US-BAYER-2011-052128

PATIENT
  Age: 39 Year
  Sex: Female
  Weight: 68.48 kg

DRUGS (1)
  1. MIRENA [Suspect]
     Indication: CONTRACEPTION
     Dosage: 20 mcg/24hr, CONT
     Route: 015
     Dates: start: 20110207, end: 20110209

REACTIONS (10)
  - Device difficult to use [None]
  - Procedural pain [Recovered/Resolved]
  - Uterine perforation [Recovered/Resolved]
  - Pelvic pain [Recovered/Resolved]
  - Proctalgia [Recovered/Resolved]
  - Inappropriate schedule of drug administration [None]
  - Exposure during breast feeding [None]
  - Abdominal discomfort [None]
  - Ascites [None]
  - Scar [None]
